FAERS Safety Report 5695363-3 (Version None)
Quarter: 2008Q2

REPORT INFORMATION
  Report Type: 
  Country: None (occurrence: None)
  Receive Date: 20080403
  Receipt Date: 20080324
  Transmission Date: 20081010
  Serious: Yes (Other)
  Sender: FDA-Public Use
  Company Number: 2008007244

PATIENT
  Age: 63 Year
  Sex: Male
  Weight: 68.0396 kg

DRUGS (1)
  1. LISTERINE WHITENING PRE-BRUSH RINSE (NO ACTIVE INGREDIENT) [Suspect]
     Indication: DENTAL CARE
     Dosage: MORE THAN THE RECOMMENDED 3 TIMES DAILY (3 IN 1 D),ORAL
     Route: 048
     Dates: start: 20080322, end: 20080323

REACTIONS (2)
  - INCORRECT DOSE ADMINISTERED [None]
  - STOMATITIS [None]
